FAERS Safety Report 11557216 (Version 1)
Quarter: 2015Q3

REPORT INFORMATION
  Report Type: Spontaneous
  Country: US (occurrence: US)
  Receive Date: 20150916
  Receipt Date: 20150916
  Transmission Date: 20151125
  Serious: No
  Sender: FDA-Public Use
  Company Number: US-ELI_LILLY_AND_COMPANY-US200807000738

PATIENT
  Age: 78 Year
  Sex: Male

DRUGS (14)
  1. LOVASTATIN. [Concomitant]
     Active Substance: LOVASTATIN
     Dosage: 20 MG, UNK
  2. VITAMIN D3 [Concomitant]
     Active Substance: CHOLECALCIFEROL
  3. CALCIUM [Concomitant]
     Active Substance: CALCIUM
  4. FORTEO [Suspect]
     Active Substance: TERIPARATIDE
     Dates: start: 20080415
  5. VITAMIN B12 [Concomitant]
     Active Substance: CYANOCOBALAMIN
     Dosage: 1000 UG, UNK
  6. CALCIUM [Concomitant]
     Active Substance: CALCIUM
     Dosage: 600 MG, UNK
  7. LISINOPRIL. [Concomitant]
     Active Substance: LISINOPRIL
     Dosage: 5 MG, UNK
  8. MINERALS NOS [Concomitant]
     Active Substance: MINERALS
  9. OMEPRAZOLE. [Concomitant]
     Active Substance: OMEPRAZOLE
     Dosage: 20 MG, UNK
  10. FOLIC ACID. [Concomitant]
     Active Substance: FOLIC ACID
     Dosage: 1 MG, UNK
  11. LEVOTHYROXIN 0.05 MG KSA [Concomitant]
     Dosage: 0.05 MG, UNK
  12. FERROUS SULFATE [Concomitant]
     Active Substance: FERROUS SULFATE\FERROUS SULFATE, DRIED
     Dosage: 325 MG, UNK
  13. PREDNISONE. [Concomitant]
     Active Substance: PREDNISONE
     Dosage: 10 MG, UNK
  14. DIGITALIS [Concomitant]
     Active Substance: DIGITALIS
     Dosage: 0.25 MG, UNK

REACTIONS (5)
  - Pruritus generalised [Unknown]
  - Haemolytic anaemia [Unknown]
  - Breast tenderness [Unknown]
  - Breast oedema [Not Recovered/Not Resolved]
  - Breast pain [Unknown]

NARRATIVE: CASE EVENT DATE: 200805
